FAERS Safety Report 10813968 (Version 3)
Quarter: 2015Q2

REPORT INFORMATION
  Report Type: Spontaneous
  Country: US (occurrence: US)
  Receive Date: 20150218
  Receipt Date: 20150619
  Transmission Date: 20150821
  Serious: Yes (Hospitalization, Other)
  Sender: FDA-Public Use
  Company Number: US-BAYER-2015-024108

PATIENT
  Age: 40 Year
  Sex: Female
  Weight: 129.71 kg

DRUGS (5)
  1. FLOVENT [Concomitant]
     Active Substance: FLUTICASONE PROPIONATE
     Dosage: UNK
     Dates: start: 2005
  2. MIRENA [Suspect]
     Active Substance: LEVONORGESTREL
     Indication: CONTRACEPTION
     Dosage: 20 MCG/24HR, CONT
     Route: 015
     Dates: start: 20071031, end: 20080206
  3. SINGULAIR [Concomitant]
     Active Substance: MONTELUKAST SODIUM
     Dosage: UNK
     Dates: start: 2002
  4. OMEPRAZOLE. [Concomitant]
     Active Substance: OMEPRAZOLE
     Dosage: UNK
     Dates: start: 2005
  5. DIOVAN [Concomitant]
     Active Substance: VALSARTAN
     Dosage: UNK
     Dates: start: 2007, end: 201501

REACTIONS (15)
  - Pelvic pain [None]
  - Depressed mood [None]
  - Device issue [None]
  - Abdominal pain [None]
  - Injury [None]
  - Emotional distress [None]
  - Abdominal discomfort [None]
  - Complication of device removal [None]
  - Uterine perforation [None]
  - Genital haemorrhage [None]
  - Internal injury [None]
  - Depression [None]
  - Fear [None]
  - Device breakage [None]
  - Anxiety [None]

NARRATIVE: CASE EVENT DATE: 2007
